FAERS Safety Report 13437703 (Version 1)
Quarter: 2017Q2

REPORT INFORMATION
  Report Type: Spontaneous
  Country: US (occurrence: US)
  Receive Date: 20170412
  Receipt Date: 20170412
  Transmission Date: 20170830
  Serious: No
  Sender: FDA-Public Use
  Company Number: US-SA-2016SA234077

PATIENT
  Age: 20 Year
  Sex: Female

DRUGS (2)
  1. ALLEGRA [Suspect]
     Active Substance: FEXOFENADINE HYDROCHLORIDE
     Indication: NASAL CONGESTION
     Dosage: DOSE TAKEN AT 4PM IN THE EVENING
     Route: 048
     Dates: start: 20161219, end: 20161219
  2. ALLEGRA [Suspect]
     Active Substance: FEXOFENADINE HYDROCHLORIDE
     Indication: NASAL CONGESTION
     Dosage: 2 DF DOSE TAKEN AT 12.00AM MIDNIGHT
     Route: 048
     Dates: start: 20161220

REACTIONS (3)
  - Intentional product misuse [Unknown]
  - Panic attack [Unknown]
  - Insomnia [Unknown]

NARRATIVE: CASE EVENT DATE: 20161220
